FAERS Safety Report 16343371 (Version 1)
Quarter: 2019Q2

REPORT INFORMATION
  Report Type: Report from Study
  Country: DE (occurrence: DE)
  Receive Date: 20190522
  Receipt Date: 20190522
  Transmission Date: 20190711
  Serious: Yes (Other)
  Sender: FDA-Public Use
  Company Number: DE-ELI_LILLY_AND_COMPANY-DE201905007524

PATIENT
  Age: 75 Year
  Sex: Female

DRUGS (1)
  1. TERIPARATIDE [Suspect]
     Active Substance: TERIPARATIDE
     Indication: OSTEOPOROSIS
     Dosage: UNK, DAILY
     Route: 058
     Dates: start: 20180814, end: 20190409

REACTIONS (6)
  - Gastrointestinal obstruction [Unknown]
  - Weight decreased [Recovering/Resolving]
  - Back pain [Recovering/Resolving]
  - Oesophageal obstruction [Unknown]
  - Feeding disorder [Recovering/Resolving]
  - Feeling abnormal [Unknown]
